FAERS Safety Report 7746418-0 (Version None)
Quarter: 2011Q3

REPORT INFORMATION
  Report Type: 
  Country: None (occurrence: None)
  Receive Date: 20110913
  Receipt Date: 20110913
  Transmission Date: 20111222
  Serious: Yes (Other)
  Sender: FDA-Public Use
  Company Number: None

PATIENT
  Age: 62 Year
  Sex: Female
  Weight: 68.946 kg

DRUGS (1)
  1. VAGIFEM [Suspect]
     Indication: VULVOVAGINAL DRYNESS
     Dosage: 10 MG
     Route: 067
     Dates: start: 20110821, end: 20110830

REACTIONS (2)
  - VULVOVAGINAL MYCOTIC INFECTION [None]
  - ALOPECIA [None]
